FAERS Safety Report 13090481 (Version 1)
Quarter: 2017Q1

REPORT INFORMATION
  Report Type: Spontaneous
  Country: US (occurrence: US)
  Receive Date: 20170105
  Receipt Date: 20170105
  Transmission Date: 20170428
  Serious: No
  Sender: FDA-Public Use
  Company Number: US-ENDO PHARMACEUTICALS INC.-2016-001267

PATIENT
  Sex: Male
  Weight: 135.75 kg

DRUGS (5)
  1. TESTOSTERONE GEL [Suspect]
     Active Substance: TESTOSTERONE
     Indication: BLOOD TESTOSTERONE DECREASED
     Route: 061
     Dates: start: 2015
  2. LEVEMIR [Concomitant]
     Active Substance: INSULIN DETEMIR
     Indication: DIABETES MELLITUS
  3. NOVOLOG [Concomitant]
     Active Substance: INSULIN ASPART
     Indication: DIABETES MELLITUS
  4. AMIODARONE [Concomitant]
     Active Substance: AMIODARONE
     Indication: PRODUCT USED FOR UNKNOWN INDICATION
  5. TESTOSTERONE GEL [Suspect]
     Active Substance: TESTOSTERONE
     Route: 061
     Dates: start: 2013, end: 2015

REACTIONS (5)
  - Wrong technique in product usage process [Recovered/Resolved]
  - Inadequate aseptic technique in use of product [Recovered/Resolved]
  - Blood pressure systolic increased [Not Recovered/Not Resolved]
  - Hot flush [Recovered/Resolved]
  - Drug effect decreased [Recovered/Resolved]

NARRATIVE: CASE EVENT DATE: 2015
